FAERS Safety Report 8918253 (Version 1)
Quarter: 2012Q4

REPORT INFORMATION
  Report Type: 
  Country: IT (occurrence: IT)
  Receive Date: 20121120
  Receipt Date: 20121120
  Transmission Date: 20130627
  Serious: Yes (Hospitalization, Other)
  Sender: FDA-Public Use
  Company Number: IT-009507513-2012SP017991

PATIENT
  Age: 55 Year
  Sex: Female

DRUGS (3)
  1. REBETOL [Suspect]
     Indication: HEPATITIS C
     Dosage: 1400 mg, QD
     Route: 048
     Dates: start: 20110527, end: 20110920
  2. PEGASYS [Suspect]
     Indication: HEPATITIS C
     Dosage: 180 ?g, QW
     Route: 058
     Dates: start: 20110527, end: 20110920
  3. METADON [Concomitant]
     Dosage: 5 mg, Unknown
     Route: 048

REACTIONS (1)
  - Disorientation [Recovered/Resolved]
